FAERS Safety Report 6726398-7 (Version None)
Quarter: 2010Q2

REPORT INFORMATION
  Report Type: 
  Country: None (occurrence: None)
  Receive Date: 20100514
  Receipt Date: 20100504
  Transmission Date: 20101027
  Serious: Yes (Hospitalization)
  Sender: FDA-Public Use
  Company Number: B0652469A

PATIENT
  Age: 47 Year
  Sex: Female

DRUGS (20)
  1. ONDANSETRON [Suspect]
     Indication: VOMITING
     Dates: start: 20100325
  2. STUDY DRUG [Suspect]
     Indication: OVARIAN CANCER
     Dosage: 1080MG CYCLIC
     Route: 042
     Dates: start: 20100409, end: 20100409
  3. DOXORUBICIN HCL [Suspect]
     Indication: OVARIAN CANCER
     Dosage: 61.76MG CYCLIC
     Route: 042
     Dates: start: 20100409, end: 20100409
  4. PHENTANYL [Suspect]
     Indication: PAIN
     Dates: start: 20100313
  5. LORAZEPAM [Suspect]
     Indication: DEPRESSION
     Dates: start: 20080101
  6. FLUOXETINE HYDROCHLORIDE [Suspect]
     Indication: DEPRESSION
     Dates: start: 20080101
  7. MORPHINE [Suspect]
     Indication: PAIN
     Dates: start: 20100404, end: 20100416
  8. TRAZODONE HCL [Suspect]
     Indication: DEPRESSION
     Dates: start: 20100315
  9. HALOPERIDOL [Suspect]
     Indication: DEPRESSION
     Dates: start: 20100401, end: 20100422
  10. NULYTELY [Concomitant]
     Indication: CONSTIPATION PROPHYLAXIS
  11. ENOXAPARIN SODIUM [Concomitant]
     Indication: HAEMOSTASIS
  12. COTRIM [Concomitant]
     Indication: DEVICE RELATED INFECTION
  13. HYDROCORTISONE [Concomitant]
     Indication: PAIN
     Dates: start: 20100325, end: 20100325
  14. DEXAMETHASONE [Concomitant]
     Indication: PAIN
     Dates: start: 20100331
  15. OMEPRAZOLE [Concomitant]
     Indication: GASTRITIS
     Dates: start: 20080101
  16. PARACETAMOL [Concomitant]
     Indication: PYREXIA
     Dates: start: 20100331
  17. AMOXICILLIN SODIUM [Concomitant]
     Dates: start: 20100331, end: 20100415
  18. UROKINASE [Concomitant]
     Indication: HAEMOSTASIS
     Dates: start: 20100415, end: 20100415
  19. BLOOD TRANSFUSION [Concomitant]
     Indication: HAEMOGLOBIN DECREASED
     Dates: start: 20100331, end: 20100331
  20. ESCITALOPRAM [Concomitant]

REACTIONS (4)
  - BRADYPHRENIA [None]
  - OVERDOSE [None]
  - PYREXIA [None]
  - SOMNOLENCE [None]
